FAERS Safety Report 9948864 (Version 1)
Quarter: 2014Q1

REPORT INFORMATION
  Report Type: Spontaneous
  Country: US (occurrence: None)
  Receive Date: 20140122
  Receipt Date: 20140122
  Transmission Date: 20141002
  Serious: Yes (Hospitalization)
  Sender: FDA-Public Use
  Company Number: 2013-19627

PATIENT
  Age: 38 Year
  Sex: Female
  Weight: 100 kg

DRUGS (1)
  1. GENERESS FE [Suspect]
     Indication: ORAL CONTRACEPTION
     Route: 048
     Dates: start: 201307, end: 20130906

REACTIONS (1)
  - Pulmonary embolism [None]
